FAERS Safety Report 5753904-1 (Version None)
Quarter: 2008Q2

REPORT INFORMATION
  Report Type: 
  Country: None (occurrence: None)
  Receive Date: 20080530
  Receipt Date: 20080521
  Transmission Date: 20081010
  Serious: Yes (Disabling)
  Sender: FDA-Public Use
  Company Number: B0522035A

PATIENT
  Age: 44 Year
  Sex: Female

DRUGS (11)
  1. ZOPHREN [Suspect]
     Indication: PREMEDICATION
     Route: 042
  2. NEULASTA [Suspect]
     Indication: PROPHYLAXIS
     Route: 058
  3. ENDOXAN [Suspect]
     Indication: BREAST CANCER
     Dosage: 850MG CYCLIC
     Route: 042
     Dates: start: 20070725, end: 20071113
  4. POLARAMINE [Suspect]
     Indication: PREMEDICATION
     Route: 042
  5. TAMOXIFEN CITRATE [Suspect]
     Indication: BREAST CANCER
     Route: 065
     Dates: start: 20080215
  6. TAXOTERE [Suspect]
     Indication: BREAST CANCER
     Dosage: 125MG CYCLIC
     Route: 042
     Dates: start: 20070725, end: 20071113
  7. EPIRUBICIN HCL [Suspect]
     Indication: BREAST CANCER
     Dosage: 125MG CYCLIC
     Route: 042
     Dates: start: 20070725, end: 20071113
  8. OSMOTAN [Suspect]
     Indication: PREMEDICATION
     Route: 065
  9. PRIMPERAN TAB [Suspect]
     Indication: PREMEDICATION
     Route: 065
  10. SOLU-MEDROL [Suspect]
     Indication: PREMEDICATION
     Route: 042
  11. HERCEPTIN [Suspect]
     Indication: BREAST CANCER
     Dosage: 520MG PER DAY
     Route: 042
     Dates: start: 20080218, end: 20080312

REACTIONS (1)
  - HYPOTHYROIDISM [None]
